FAERS Safety Report 15900931 (Version 4)
Quarter: 2019Q1

REPORT INFORMATION
  Report Type: Report from Study
  Country: JP (occurrence: JP)
  Receive Date: 20190201
  Receipt Date: 20190311
  Transmission Date: 20190417
  Serious: Yes (Hospitalization, Other)
  Sender: FDA-Public Use
  Company Number: JP-EXELIXIS-XL18419018441

PATIENT
  Age: 73 Year
  Sex: Male
  Weight: 52 kg

DRUGS (22)
  1. CABOZANTINIB [Suspect]
     Active Substance: CABOZANTINIB
     Indication: HEPATOCELLULAR CARCINOMA
     Dosage: 60 MILLIGRAM, QD
     Route: 048
     Dates: start: 20180913, end: 20180913
  2. AZUNOL                             /00317302/ [Concomitant]
     Indication: STOMATITIS
     Dosage: UNK UNK, BID
     Route: 049
  3. RESTAMIN                           /00000401/ [Concomitant]
     Active Substance: DIPHENHYDRAMINE
     Indication: PRURITUS
     Dosage: UNK UNK, BID
     Route: 062
     Dates: start: 20180918
  4. LIVACT                             /00847901/ [Concomitant]
     Active Substance: ISOLEUCINE\LEUCINE\VALINE
     Indication: NUTRITIONAL SUPPLEMENTATION
     Dosage: 1 DOSAGE FORM, TID
     Route: 048
     Dates: start: 20181214
  5. MIYA-BM [Concomitant]
     Active Substance: CLOSTRIDIUM BUTYRICUM SPORES STRAIN M-55
     Indication: PROPHYLAXIS
     Dosage: 20 MILLIGRAM, TID
     Route: 048
     Dates: start: 20180915
  6. FEXOFENADINE HYDROCHLORIDE. [Concomitant]
     Active Substance: FEXOFENADINE HYDROCHLORIDE
     Indication: PRURITUS
     Dosage: 60 MILLIGRAM, BID
     Route: 048
     Dates: start: 20180925
  7. REMITCH [Concomitant]
     Active Substance: NALFURAFINE HYDROCHLORIDE
     Indication: PRURITUS
     Dosage: 2.5 MICROGRAM, QD
     Route: 048
     Dates: start: 20180111
  8. CABOZANTINIB [Suspect]
     Active Substance: CABOZANTINIB
     Dosage: 20 MILLIGRAM, QD
     Route: 048
     Dates: start: 20181214, end: 20190110
  9. CABOZANTINIB [Suspect]
     Active Substance: CABOZANTINIB
     Dosage: 40 MILLIGRAM, QD
     Route: 048
     Dates: start: 20181109, end: 20181129
  10. FUNGIZONE [Concomitant]
     Active Substance: AMPHOTERICIN B
     Indication: FUNGAL OESOPHAGITIS
     Dosage: 4 MILLILITER, QID
     Route: 048
     Dates: start: 20181109
  11. POLARAMINE [Concomitant]
     Active Substance: DEXCHLORPHENIRAMINE MALEATE
     Indication: PRURITUS
     Dosage: 20 MILLIGRAM, TID
     Route: 048
     Dates: start: 20181012
  12. NEXIUM [Concomitant]
     Active Substance: ESOMEPRAZOLE MAGNESIUM
     Indication: PROPHYLAXIS
     Dosage: 20 MILLIGRAM, QD
     Route: 048
     Dates: start: 20180611
  13. URSODEOXYCHOLIC ACID [Concomitant]
     Active Substance: URSODIOL
     Indication: CHOLELITHIASIS
     Dosage: 300 MILLIGRAM, TID
     Route: 048
     Dates: start: 20181112
  14. ACUATIM [Concomitant]
     Active Substance: NADIFLOXACIN
     Indication: PRURITUS
     Dosage: UNK UNK, BID
     Route: 062
     Dates: start: 20181122
  15. CABOZANTINIB [Suspect]
     Active Substance: CABOZANTINIB
     Dosage: 60 MILLIGRAM, QD
     Route: 048
     Dates: start: 20180926, end: 20181018
  16. CABOZANTINIB [Suspect]
     Active Substance: CABOZANTINIB
     Dosage: 20 MILLIGRAM, QD
     Route: 048
     Dates: start: 20190222
  17. ALDACTONE A [Concomitant]
     Active Substance: SPIRONOLACTONE
     Indication: PROPHYLAXIS
     Dosage: 25 MILLIGRAM, QD
     Route: 048
     Dates: start: 20180828
  18. FUROSEMIDE. [Concomitant]
     Active Substance: FUROSEMIDE
     Indication: PROPHYLAXIS
     Dosage: 20 MILLIGRAM, QD
     Route: 048
     Dates: start: 20180828
  19. BISOPROLOL FUMARATE. [Concomitant]
     Active Substance: BISOPROLOL FUMARATE
     Indication: ARRHYTHMIA
     Dosage: 2.5 MILLIGRAM, QD
     Route: 048
     Dates: start: 20151225
  20. GENTAMICIN SULFATE. [Concomitant]
     Active Substance: GENTAMICIN SULFATE
     Indication: RASH
     Dosage: UNK UNK, QOD
     Route: 062
     Dates: start: 20181012
  21. ENSURE [Concomitant]
     Active Substance: AMINO ACIDS\DEXTROSE\ELECTROLYTES NOS\SOYBEAN OIL\VITAMINS
     Indication: NUTRITIONAL SUPPLEMENTATION
     Dosage: 1 DOSAGE FORM, QD
     Route: 048
     Dates: start: 20181214
  22. AZUNOL                             /00317302/ [Concomitant]
     Dosage: UNK UNK, BID
     Route: 049

REACTIONS (1)
  - Peritonitis bacterial [Recovered/Resolved]

NARRATIVE: CASE EVENT DATE: 20190115
